FAERS Safety Report 18508273 (Version 2)
Quarter: 2020Q4

REPORT INFORMATION
  Report Type: Report from Study
  Country: GR (occurrence: GR)
  Receive Date: 20201116
  Receipt Date: 20201203
  Transmission Date: 20210114
  Serious: Yes (Other)
  Sender: FDA-Public Use
  Company Number: GR-VERTEX PHARMACEUTICALS-2020-020357

PATIENT
  Age: 42 Year
  Sex: Female
  Weight: 55 kg

DRUGS (2)
  1. KAFTRIO [Suspect]
     Active Substance: ELEXACAFTOR\IVACAFTOR\TEZACAFTOR
     Indication: CYSTIC FIBROSIS
     Dosage: 2 TABS (75 MG IVACAFTOR/ 50 MG TEZACAFTOR/ 100 MG ELEXACAFTOR), QD
     Route: 048
     Dates: start: 20200910
  2. KALYDECO [Suspect]
     Active Substance: IVACAFTOR
     Indication: CYSTIC FIBROSIS
     Dosage: 1 TAB (150 MG IVACAFTOR), QD
     Route: 048
     Dates: start: 20200910

REACTIONS (2)
  - Alanine aminotransferase increased [Recovering/Resolving]
  - Blood creatine phosphokinase increased [Recovered/Resolved]

NARRATIVE: CASE EVENT DATE: 20201008
